FAERS Safety Report 7418282-0 (Version None)
Quarter: 2011Q2

REPORT INFORMATION
  Report Type: 
  Country: None (occurrence: None)
  Receive Date: 20110408
  Receipt Date: 20110325
  Transmission Date: 20111010
  Serious: Yes (Other)
  Sender: FDA-Public Use
  Company Number: 2010002858

PATIENT
  Age: 47 Year
  Sex: Male
  Weight: 93.3 kg

DRUGS (6)
  1. ERLOTINIB(ERLOTINIB) (TABLETS) (ERLOTINIB) [Suspect]
     Indication: EWING'S SARCOMA
     Dosage: 75 MG, QD, ORAL
     Route: 048
     Dates: start: 20100629
  2. ERLOTINIB(ERLOTINIB) (TABLETS) (ERLOTINIB) [Suspect]
     Indication: NEOPLASM
     Dosage: 75 MG, QD, ORAL
     Route: 048
     Dates: start: 20100629
  3. GDC-0449 (CAPSULES) [Suspect]
     Indication: NEOPLASM
     Dosage: 150 MG, QD PER 56 DAY CYCLE, ORAL
     Route: 048
     Dates: start: 20100629
  4. GDC-0449 (CAPSULES) [Suspect]
     Indication: EWING'S SARCOMA
     Dosage: 150 MG, QD PER 56 DAY CYCLE, ORAL
     Route: 048
     Dates: start: 20100629
  5. GEMCITABINE [Suspect]
     Indication: EWING'S SARCOMA
     Dosage: (750 MG/M2 DAY 1, 8, 15, 22, 29, 36, 43 (56/D CYCLE)), INTRAVENOUS
     Route: 042
     Dates: start: 20100629
  6. GEMCITABINE [Suspect]
     Indication: NEOPLASM
     Dosage: (750 MG/M2 DAY 1, 8, 15, 22, 29, 36, 43 (56/D CYCLE)), INTRAVENOUS
     Route: 042
     Dates: start: 20100629

REACTIONS (6)
  - EPISTAXIS [None]
  - NEUTROPHIL COUNT DECREASED [None]
  - PLATELET COUNT DECREASED [None]
  - RASH ERYTHEMATOUS [None]
  - WHITE BLOOD CELL COUNT DECREASED [None]
  - RASH PRURITIC [None]
